FAERS Safety Report 12356431 (Version 3)
Quarter: 2016Q2

REPORT INFORMATION
  Report Type: Spontaneous
  Country: RU (occurrence: RU)
  Receive Date: 20160511
  Receipt Date: 20160615
  Transmission Date: 20160815
  Serious: Yes (Congenital Anomaly, Other)
  Sender: FDA-Public Use
  Company Number: RU-ABBVIE-16P-251-1624311-00

PATIENT
  Sex: Female
  Weight: 3.78 kg

DRUGS (1)
  1. DEPAKINE [Suspect]
     Active Substance: VALPROATE SODIUM
     Indication: MATERNAL EXPOSURE TIMING UNSPECIFIED
     Route: 064

REACTIONS (35)
  - Cerebrospinal fluid leakage [Unknown]
  - Urine calcium decreased [Unknown]
  - Glycosuria [Unknown]
  - Blood urea increased [Unknown]
  - Developmental hip dysplasia [Unknown]
  - Acute kidney injury [Recovering/Resolving]
  - Urine sodium decreased [Unknown]
  - Proteinuria [Unknown]
  - Blood creatinine increased [Unknown]
  - Leukocyturia [Unknown]
  - Foetal anticonvulsant syndrome [Not Recovered/Not Resolved]
  - Renal tubular disorder [Not Recovered/Not Resolved]
  - Hyporeflexia [Unknown]
  - Urine chloride decreased [Unknown]
  - Urinary tract infection [Unknown]
  - Congenital anomaly [Unknown]
  - Vertical talus [Unknown]
  - Hypercalcaemia [Unknown]
  - Urine phosphorus increased [Unknown]
  - Meningomyelocele [Recovered/Resolved]
  - Low set ears [Unknown]
  - High arched palate [Unknown]
  - Meningoradiculitis [Unknown]
  - Myelitis [Unknown]
  - Acute kidney injury [Unknown]
  - Brain herniation [Unknown]
  - Nose deformity [Unknown]
  - Foetal exposure during pregnancy [Unknown]
  - Exposure during breast feeding [Recovered/Resolved]
  - Cushingoid [Unknown]
  - Paraparesis [Unknown]
  - General physical health deterioration [Unknown]
  - Azotaemia [Unknown]
  - Spinal cord herniation [Unknown]
  - Abnormal palmar/plantar creases [Unknown]
